FAERS Safety Report 13097648 (Version 1)
Quarter: 2017Q1

REPORT INFORMATION
  Report Type: Spontaneous
  Country: US (occurrence: US)
  Receive Date: 20170108
  Receipt Date: 20170108
  Transmission Date: 20170428
  Serious: Yes (Disabling)
  Sender: FDA-Public Use
  Company Number: None

PATIENT
  Age: 67 Year
  Sex: Female
  Weight: 85.05 kg

DRUGS (9)
  1. ALTACE [Concomitant]
     Active Substance: RAMIPRIL
  2. VITAMIN D [Concomitant]
     Active Substance: CHOLECALCIFEROL
  3. ASPIRIN. [Concomitant]
     Active Substance: ASPIRIN
  4. TOBRADEX [Suspect]
     Active Substance: DEXAMETHASONE\TOBRAMYCIN
     Indication: ROSACEA
     Dosage: ?          QUANTITY:10 RUBBED INTO EYELAS;OTHER FREQUENCY:EVERY NIGHT;OTHER ROUTE:BETWEEN EYELASHES?
     Dates: start: 20150113, end: 20150122
  5. MULTIVITAMIN B-12 [Concomitant]
  6. TOBRAMYCIN/DEXAMETHASONE SUSP 5M ALCON [Suspect]
     Active Substance: DEXAMETHASONE\TOBRAMYCIN
     Indication: ROSACEA
     Dosage: ?          QUANTITY:40 DROP(S);?
     Route: 047
     Dates: start: 20150113, end: 20150122
  7. TOBRAMYCIN/DEXAMETHASONE SUSP 5M ALCON [Suspect]
     Active Substance: DEXAMETHASONE\TOBRAMYCIN
     Indication: DRY EYE
     Dosage: ?          QUANTITY:40 DROP(S);?
     Route: 047
     Dates: start: 20150113, end: 20150122
  8. TOBRADEX [Suspect]
     Active Substance: DEXAMETHASONE\TOBRAMYCIN
     Indication: DRY EYE
     Dosage: ?          QUANTITY:10 RUBBED INTO EYELAS;OTHER FREQUENCY:EVERY NIGHT;OTHER ROUTE:BETWEEN EYELASHES?
     Dates: start: 20150113, end: 20150122
  9. TENORMIN [Concomitant]
     Active Substance: ATENOLOL

REACTIONS (5)
  - Visual impairment [None]
  - Optic nerve disorder [None]
  - Visual acuity reduced [None]
  - Vision blurred [None]
  - Eye haemorrhage [None]
